FAERS Safety Report 4985475-1 (Version None)
Quarter: 2006Q2

REPORT INFORMATION
  Report Type: 
  Country: None (occurrence: None)
  Receive Date: 20060428
  Receipt Date: 20041216
  Transmission Date: 20061013
  Serious: No
  Sender: FDA-Public Use
  Company Number: US-GLAXOSMITHKLINE-A0552141A

PATIENT
  Age: 45 Year
  Sex: Male
  Weight: 75 kg

DRUGS (1)
  1. FLONASE [Suspect]
     Route: 055

REACTIONS (1)
  - CHORIORETINOPATHY [None]
